FAERS Safety Report 9154039 (Version 1)
Quarter: 2013Q1

REPORT INFORMATION
  Report Type: Spontaneous
  Country: JP (occurrence: JP)
  Receive Date: 20130311
  Receipt Date: 20130311
  Transmission Date: 20140127
  Serious: Yes (Other)
  Sender: FDA-Public Use
  Company Number: JP-PFIZER INC-2013077912

PATIENT
  Sex: Female

DRUGS (2)
  1. UNASYN-S [Suspect]
     Indication: INFECTION
     Dosage: UNK
  2. NEORAL [Concomitant]

REACTIONS (3)
  - Loss of consciousness [Unknown]
  - Sepsis [Unknown]
  - Drug ineffective [Unknown]
